FAERS Safety Report 4386641-9 (Version None)
Quarter: 2004Q2

REPORT INFORMATION
  Report Type: 
  Country: None (occurrence: None)
  Receive Date: 20040623
  Receipt Date: 20040608
  Transmission Date: 20050107
  Serious: Yes (Other)
  Sender: FDA-Public Use
  Company Number: USA040669529

PATIENT
  Age: 62 Year
  Sex: Male
  Weight: 95 kg

DRUGS (5)
  1. HUMULIN 70/30 [Suspect]
     Indication: DIABETES MELLITUS
     Dosage: 60 U DAY
     Dates: start: 19940101
  2. INSULIN [Suspect]
     Indication: DIABETES MELLITUS
     Dates: start: 19890101
  3. CORTISONE [Concomitant]
  4. COUMADIN [Concomitant]
  5. CAMPHOR/EUCALYPTUS/METHOL/METHYL SALICYLATE) [Concomitant]

REACTIONS (6)
  - ARRHYTHMIA [None]
  - ARTHRITIS [None]
  - ARTHROPATHY [None]
  - BLOOD GLUCOSE INCREASED [None]
  - PHARMACEUTICAL PRODUCT COMPLAINT [None]
  - SHOULDER ARTHROPLASTY [None]
